FAERS Safety Report 7432407-2 (Version None)
Quarter: 2011Q2

REPORT INFORMATION
  Report Type: 
  Country: None (occurrence: None)
  Receive Date: 20110422
  Receipt Date: 20110408
  Transmission Date: 20111010
  Serious: No
  Sender: FDA-Public Use
  Company Number: US-B.I. PHARMACEUTICALS,INC./RIDGEFIELD-2011-BP-10418BP

PATIENT
  Sex: Male

DRUGS (5)
  1. DORZOLAMIDE [Concomitant]
     Indication: GLAUCOMA
     Route: 054
  2. PRADAXA [Suspect]
     Indication: ATRIAL FIBRILLATION
     Dosage: 300 MG
     Route: 048
     Dates: start: 20101226
  3. CRESTOR [Concomitant]
     Dosage: 10 MG
     Route: 048
  4. METOPROLOL [Concomitant]
     Route: 048
  5. CAPTOPRIL [Concomitant]
     Route: 048

REACTIONS (1)
  - CHEST PAIN [None]
